FAERS Safety Report 6400767-7 (Version None)
Quarter: 2009Q4

REPORT INFORMATION
  Report Type: 
  Country: None (occurrence: None)
  Receive Date: 20091008
  Receipt Date: 20090928
  Transmission Date: 20100525
  Serious: Yes (Hospitalization)
  Sender: FDA-Public Use
  Company Number: TCI2009A03279

PATIENT
  Age: 63 Year
  Sex: Male

DRUGS (9)
  1. ACTOS [Suspect]
     Indication: TYPE 2 DIABETES MELLITUS
     Dosage: 15 MG (15 MG, 1 IN 1 D), PER ORAL
     Route: 048
     Dates: start: 20081121
  2. CANDESARTAN CILEXETIL [Suspect]
     Indication: HYPERTENSION
     Dosage: 8 MG(8MG, 1 IN 1 D), PER ORAL
     Route: 048
     Dates: start: 20081121
  3. GLIMICRON (GLICLAZIDE) [Suspect]
     Indication: TYPE 2 DIABETES MELLITUS
     Dosage: 40MG(40MG, 1 IN 1 D); 40MG(20MG, 2 IN 1 D); 20MG (20MG, 1 IN 1 D)
     Route: 048
     Dates: start: 20081121, end: 20081204
  4. GLIMICRON (GLICLAZIDE) [Suspect]
     Indication: TYPE 2 DIABETES MELLITUS
     Dosage: 40MG(40MG, 1 IN 1 D); 40MG(20MG, 2 IN 1 D); 20MG (20MG, 1 IN 1 D)
     Route: 048
     Dates: start: 20081205, end: 20090108
  5. GLIMICRON (GLICLAZIDE) [Suspect]
     Indication: TYPE 2 DIABETES MELLITUS
     Dosage: 40MG(40MG, 1 IN 1 D); 40MG(20MG, 2 IN 1 D); 20MG (20MG, 1 IN 1 D)
     Route: 048
     Dates: start: 20090109, end: 20090605
  6. ALLELOCK (OLOPATADINE HYDROCHLORIDE) [Concomitant]
  7. TOPSYM ( FLUOCINONIDE) [Concomitant]
  8. HIRUDOID SOFT (MUCOPOLYSACCHARIDE POLYSULFURIC ACID ESTER) [Concomitant]
  9. RINDERON-VG (GENTAMICIN SULFATE, BETAMETHASONE VALERATE) [Concomitant]

REACTIONS (1)
  - HEPATITIS ACUTE [None]
